FAERS Safety Report 6953520-X (Version None)
Quarter: 2010Q3

REPORT INFORMATION
  Report Type: 
  Country: None (occurrence: None)
  Receive Date: 20100829
  Receipt Date: 20100614
  Transmission Date: 20110219
  Serious: No
  Sender: FDA-Public Use
  Company Number: US-ABBOTT-10P-163-0652418-00

PATIENT
  Sex: Female
  Weight: 63.106 kg

DRUGS (6)
  1. NIASPAN [Suspect]
     Indication: MYOCARDIAL INFARCTION
     Route: 048
     Dates: start: 20091101, end: 20100514
  2. NIASPAN [Suspect]
     Indication: HIGH DENSITY LIPOPROTEIN DECREASED
  3. RANEXA [Concomitant]
     Indication: ANGINA PECTORIS
     Route: 048
  4. PLAVIX [Concomitant]
     Indication: MYOCARDIAL INFARCTION
     Route: 048
  5. ASPIRIN [Concomitant]
     Indication: MYOCARDIAL INFARCTION
     Route: 048
  6. LIPITOR [Concomitant]
     Indication: MYOCARDIAL INFARCTION
     Route: 048

REACTIONS (4)
  - BLOOD GLUCOSE INCREASED [None]
  - FATIGUE [None]
  - INSOMNIA [None]
  - OEDEMA PERIPHERAL [None]
